FAERS Safety Report 5883922-4 (Version None)
Quarter: 2008Q3

REPORT INFORMATION
  Report Type: 
  Country: None (occurrence: None)
  Receive Date: 20080915
  Receipt Date: 20080909
  Transmission Date: 20090109
  Serious: Yes (Death, Life-Threatening, Hospitalization)
  Sender: FDA-Public Use
  Company Number: B0531729A

PATIENT
  Age: 56 Year
  Sex: Female
  Weight: 51 kg

DRUGS (15)
  1. FLOLAN [Suspect]
     Indication: PULMONARY EMBOLISM
     Route: 042
     Dates: start: 20060426
  2. WARFARIN SODIUM [Concomitant]
     Indication: PULMONARY EMBOLISM
     Dosage: 3.25MG PER DAY
     Route: 048
     Dates: end: 20070701
  3. FUROSEMIDE [Concomitant]
     Indication: CARDIAC FAILURE
     Dosage: 120MG PER DAY
     Route: 048
     Dates: end: 20070701
  4. SPIRONOLACTONE [Concomitant]
     Indication: CARDIAC FAILURE
     Dosage: 25MG PER DAY
     Route: 048
     Dates: end: 20070701
  5. TRACLEER [Concomitant]
     Indication: PULMONARY HYPERTENSION
     Dosage: 125MG PER DAY
     Route: 048
     Dates: end: 20070719
  6. VIAGRA [Concomitant]
     Indication: PULMONARY HYPERTENSION
     Dosage: 50MG PER DAY
     Route: 048
     Dates: end: 20070719
  7. ACARDI [Concomitant]
     Indication: CARDIAC FAILURE
     Dosage: 2.5MG PER DAY
     Route: 048
     Dates: end: 20070701
  8. CEFAMEZIN [Concomitant]
  9. INOVAN [Concomitant]
     Indication: CARDIAC FAILURE
     Dates: start: 20070626, end: 20070719
  10. DIPRIVAN [Concomitant]
     Dates: start: 20070704, end: 20070719
  11. PAZUCROSS [Concomitant]
     Indication: PNEUMONIA
     Dosage: 500MG PER DAY
     Dates: start: 20070706, end: 20070719
  12. VANCOMYCIN HYDROCHLORIDE [Concomitant]
     Indication: PNEUMONIA
     Dosage: .5G PER DAY
     Dates: start: 20070706, end: 20070719
  13. HEPARIN [Concomitant]
     Indication: PULMONARY EMBOLISM
     Dates: start: 20070701, end: 20070719
  14. MIDAZOLAM HCL [Concomitant]
     Dates: start: 20070704, end: 20070719
  15. BOSMIN [Concomitant]
     Indication: CARDIAC FAILURE
     Dates: start: 20070704, end: 20070719

REACTIONS (1)
  - CARDIAC FAILURE [None]
